FAERS Safety Report 14893663 (Version 1)
Quarter: 2018Q2

REPORT INFORMATION
  Report Type: Report from Study
  Country: RO (occurrence: RO)
  Receive Date: 20180514
  Receipt Date: 20180514
  Transmission Date: 20180711
  Serious: Yes (Hospitalization)
  Sender: FDA-Public Use
  Company Number: RO-GILEAD-2018-0337502

PATIENT
  Age: 59 Year
  Sex: Male

DRUGS (9)
  1. NORMIX [Concomitant]
     Active Substance: RIFAXIMIN
     Dosage: UNK
  2. HEPAMERZ                           /01390201/ [Concomitant]
     Dosage: UNK
  3. ESENTIN FORTE [Concomitant]
     Dosage: UNK
  4. LEDIPASVIR/SOFOSBUVIR [Suspect]
     Active Substance: LEDIPASVIR\SOFOSBUVIR
     Indication: HEPATIC CIRRHOSIS
     Dosage: 1 DF, UNK
     Route: 048
     Dates: start: 20180127, end: 201802
  5. URSOFALK [Concomitant]
     Active Substance: URSODIOL
     Dosage: UNK
  6. LEDIPASVIR/SOFOSBUVIR [Suspect]
     Active Substance: LEDIPASVIR\SOFOSBUVIR
     Indication: HEPATITIS C
     Dosage: 1 DF, QD
     Route: 048
     Dates: start: 2018, end: 20180421
  7. ZENCOPAN [Concomitant]
     Dosage: UNK
  8. PROPRANOLOL [Concomitant]
     Active Substance: PROPRANOLOL HYDROCHLORIDE
     Dosage: UNK
  9. ARGININA                           /00126101/ [Concomitant]
     Dosage: UNK

REACTIONS (1)
  - Pyrexia [Unknown]

NARRATIVE: CASE EVENT DATE: 201802
